FAERS Safety Report 7683863-6 (Version None)
Quarter: 2011Q3

REPORT INFORMATION
  Report Type: 
  Country: None (occurrence: None)
  Receive Date: 20110815
  Receipt Date: 20110810
  Transmission Date: 20111222
  Serious: Yes (Hospitalization, Other)
  Sender: FDA-Public Use
  Company Number: AR-PFIZER INC-2011174346

PATIENT
  Age: 64 Year
  Sex: Female
  Weight: 58 kg

DRUGS (1)
  1. SUTENT [Suspect]
     Indication: RENAL CANCER METASTATIC
     Dosage: 50 MG, EVERY 28 DAYS
     Route: 048
     Dates: start: 20100101, end: 20110601

REACTIONS (2)
  - DIARRHOEA [None]
  - TOXICITY TO VARIOUS AGENTS [None]
